FAERS Safety Report 9129329 (Version 1)
Quarter: 2013Q1

REPORT INFORMATION
  Report Type: Spontaneous
  Country: US (occurrence: US)
  Receive Date: 20130125
  Receipt Date: 20130125
  Transmission Date: 20140127
  Serious: No
  Sender: FDA-Public Use
  Company Number: US-ASTRAZENECA-2012SE86977

PATIENT
  Age: 69 Year
  Sex: Female
  Weight: 96.2 kg

DRUGS (11)
  1. BRILINTA [Suspect]
     Indication: STENT PLACEMENT
     Route: 048
     Dates: start: 201211
  2. ATENOLOL [Suspect]
     Indication: BLOOD PRESSURE ABNORMAL
     Route: 048
  3. PLAVIX [Suspect]
     Route: 048
  4. FENOFIBRATE [Concomitant]
     Indication: CARDIAC DISORDER
     Route: 048
  5. FISH OIL [Concomitant]
     Indication: MEDICAL DIET
     Route: 048
  6. CALTRATE [Concomitant]
     Indication: MEDICAL DIET
     Route: 048
  7. SIMVUSTATIN [Concomitant]
     Indication: BLOOD CHOLESTEROL ABNORMAL
     Route: 048
  8. BABY ASPIRIN [Concomitant]
     Indication: STENT PLACEMENT
     Route: 048
  9. CENTRUM [Concomitant]
     Indication: VITAMIN SUPPLEMENTATION
     Route: 048
  10. GENERIC LORAZAPAM [Concomitant]
     Indication: NERVOUS SYSTEM DISORDER
     Route: 048
  11. GENERIC PAXIL [Concomitant]
     Indication: NERVOUS SYSTEM DISORDER
     Route: 048

REACTIONS (7)
  - Nasopharyngitis [Unknown]
  - Influenza [Unknown]
  - Pruritus [Not Recovered/Not Resolved]
  - Dyspnoea [Unknown]
  - Rash [Recovered/Resolved]
  - Drug hypersensitivity [Unknown]
  - Drug dose omission [Unknown]
